FAERS Safety Report 9224414 (Version 1)
Quarter: 2013Q2

REPORT INFORMATION
  Report Type: Spontaneous
  Country: US (occurrence: US)
  Receive Date: 20130411
  Receipt Date: 20130411
  Transmission Date: 20140414
  Serious: Yes (Other)
  Sender: FDA-Public Use
  Company Number: US-BAYER-2013-044295

PATIENT
  Age: 34 Year
  Sex: Female
  Weight: 72.56 kg

DRUGS (11)
  1. YASMIN [Suspect]
  2. OCELLA [Suspect]
  3. SYNTHROID [Concomitant]
  4. DARVOCET [Concomitant]
     Dosage: UNK
     Dates: start: 20091210
  5. TYLENOL [Concomitant]
  6. OMEPRAZOLE [Concomitant]
     Dosage: UNK
     Dates: start: 20091210
  7. BACLOFEN [Concomitant]
     Dosage: UNK
     Dates: start: 20091214
  8. UNCODEABLE ^UNCLASSIFIABLE^ [Concomitant]
     Dosage: 1000 MG, ONCE A MONTH
     Route: 042
     Dates: start: 20100215
  9. SOLU-MEDROL [Concomitant]
     Dosage: DAILY FOR THREE DAYS,
     Route: 042
  10. APIXABAN [Concomitant]
  11. COPAXONE [Concomitant]

REACTIONS (2)
  - Deep vein thrombosis [Recovered/Resolved]
  - Deep vein thrombosis [None]
